FAERS Safety Report 22526958 (Version 1)
Quarter: 2023Q2

REPORT INFORMATION
  Report Type: Spontaneous
  Country: CN (occurrence: CN)
  Receive Date: 20230606
  Receipt Date: 20230606
  Transmission Date: 20230721
  Serious: Yes (Hospitalization, Other)
  Sender: FDA-Public Use
  Company Number: CN-ORGANON-O2306CHN001117

PATIENT
  Age: 33 Year
  Sex: Female
  Weight: 82 kg

DRUGS (6)
  1. FOLLITROPIN BETA [Suspect]
     Active Substance: FOLLITROPIN BETA
     Indication: Ovulation induction
     Dosage: 120IU, QD
     Dates: start: 20230509, end: 20230513
  2. FOLLITROPIN BETA [Suspect]
     Active Substance: FOLLITROPIN BETA
     Dosage: 150IU, QD
     Dates: start: 20230514, end: 20230517
  3. MENOTROPINS [Suspect]
     Active Substance: MENOTROPINS
     Indication: Ovulation induction
     Dosage: 150IU, QD
     Dates: start: 20230509, end: 20230520
  4. CHORIOGONADOTROPIN ALFA [Suspect]
     Active Substance: CHORIOGONADOTROPIN ALFA
     Indication: Ovulation induction
     Dosage: 250UG, QD
     Dates: start: 20230520, end: 20230520
  5. SODIUM CHLORIDE [Concomitant]
     Active Substance: SODIUM CHLORIDE
     Indication: Vehicle solution use
     Dosage: 2ML, QD
     Dates: start: 20230509, end: 20230520
  6. STERILE WATER FOR INJECTION [Concomitant]
     Active Substance: WATER
     Indication: Vehicle solution use
     Dosage: 1ML, QD
     Dates: start: 20230518, end: 20230518

REACTIONS (4)
  - Ovarian hyperstimulation syndrome [Recovering/Resolving]
  - Abdominal distension [Recovering/Resolving]
  - Abdominal pain [Recovering/Resolving]
  - Tension [Recovering/Resolving]

NARRATIVE: CASE EVENT DATE: 20230522
